FAERS Safety Report 15073373 (Version 1)
Quarter: 2018Q2

REPORT INFORMATION
  Report Type: Spontaneous
  Country: US (occurrence: US)
  Receive Date: 20180606
  Receipt Date: 20180606
  Transmission Date: 20180711
  Serious: Yes (Hospitalization)
  Sender: FDA-Public Use
  Company Number: None

PATIENT
  Age: 49 Year
  Sex: Female
  Weight: 83.7 kg

DRUGS (12)
  1. BUPRENORPHINE. [Concomitant]
     Active Substance: BUPRENORPHINE
  2. OMEPRAZOLE. [Concomitant]
     Active Substance: OMEPRAZOLE
  3. IRON [Concomitant]
     Active Substance: IRON
  4. SUBOXONE [Suspect]
     Active Substance: BUPRENORPHINE HYDROCHLORIDE\NALOXONE HYDROCHLORIDE
     Indication: PAIN MANAGEMENT
     Dosage: ?          QUANTITY:2 DF DOSAGE FORM;?
     Route: 048
     Dates: start: 20160707, end: 20160805
  5. CELEXA [Concomitant]
     Active Substance: CITALOPRAM HYDROBROMIDE
  6. ASA [Concomitant]
     Active Substance: ASPIRIN
  7. METAMUCIL [Concomitant]
     Active Substance: PLANTAGO SEED
  8. METFORMIN [Concomitant]
     Active Substance: METFORMIN HYDROCHLORIDE
  9. HAIR AND NAIL SUPPLEMENT [Concomitant]
  10. NEURONTIN [Concomitant]
     Active Substance: GABAPENTIN
  11. MULTIVITAMIN [Concomitant]
     Active Substance: VITAMINS
  12. WELLBUTRIN [Concomitant]
     Active Substance: BUPROPION HYDROCHLORIDE

REACTIONS (4)
  - Chest pain [None]
  - Dyspnoea [None]
  - Inability to afford medication [None]
  - Insurance issue [None]

NARRATIVE: CASE EVENT DATE: 20160804
